FAERS Safety Report 25710159 (Version 1)
Quarter: 2025Q3

REPORT INFORMATION
  Report Type: Spontaneous
  Country: EU (occurrence: EU)
  Receive Date: 20250821
  Receipt Date: 20250821
  Transmission Date: 20251020
  Serious: Yes (Hospitalization, Congenital Anomaly)
  Sender: RANBAXY
  Company Number: EU-SUN PHARMACEUTICAL INDUSTRIES LTD-2025RR-523261

PATIENT
  Sex: Female
  Weight: 2.09 kg

DRUGS (1)
  1. GABAPENTIN [Suspect]
     Active Substance: GABAPENTIN
     Indication: Guillain-Barre syndrome
     Route: 064
     Dates: start: 2022

REACTIONS (2)
  - Brachydactyly [Recovered/Resolved with Sequelae]
  - Premature baby [Recovered/Resolved]

NARRATIVE: CASE EVENT DATE: 20230726
